FAERS Safety Report 13408158 (Version 1)
Quarter: 2017Q2

REPORT INFORMATION
  Report Type: Spontaneous
  Country: GB (occurrence: GB)
  Receive Date: 20170406
  Receipt Date: 20170406
  Transmission Date: 20170830
  Serious: Yes (Death)
  Sender: FDA-Public Use
  Company Number: GB-ACCORD-049825

PATIENT
  Age: 35 Year
  Sex: Female

DRUGS (6)
  1. AMITRIPTYLINE [Suspect]
     Active Substance: AMITRIPTYLINE
  2. DIAMORPHINE [Suspect]
     Active Substance: DIAMORPHINE
  3. METHADONE [Suspect]
     Active Substance: METHADONE HYDROCHLORIDE
  4. PREGABALIN PFIZER [Suspect]
     Active Substance: PREGABALIN
  5. COCAINE [Suspect]
     Active Substance: COCAINE
  6. MIRTAZAPINE PFIZER [Suspect]
     Active Substance: MIRTAZAPINE

REACTIONS (1)
  - Death [Fatal]

NARRATIVE: CASE EVENT DATE: 20161206
